FAERS Safety Report 25487860 (Version 1)
Quarter: 2025Q2

REPORT INFORMATION
  Report Type: Spontaneous
  Country: FR (occurrence: FR)
  Receive Date: 20250627
  Receipt Date: 20250627
  Transmission Date: 20250717
  Serious: Yes (Hospitalization, Other)
  Sender: FRESENIUS KABI
  Company Number: None

PATIENT
  Age: 68 Year
  Sex: Male

DRUGS (7)
  1. PROPOFOL [Suspect]
     Active Substance: PROPOFOL
     Indication: Sedation
     Route: 042
     Dates: start: 20250520, end: 20250531
  2. PROPOFOL [Suspect]
     Active Substance: PROPOFOL
     Route: 042
     Dates: start: 20250607, end: 20250610
  3. PIPERACILLIN SODIUM\TAZOBACTAM SODIUM [Suspect]
     Active Substance: PIPERACILLIN SODIUM\TAZOBACTAM SODIUM
     Indication: Staphylococcal infection
     Route: 042
     Dates: start: 20250528, end: 20250608
  4. AMIODARONE [Suspect]
     Active Substance: AMIODARONE
     Indication: Atrial fibrillation
     Route: 048
     Dates: start: 20250523, end: 20250607
  5. SUFENTANIL CITRATE [Suspect]
     Active Substance: SUFENTANIL CITRATE
     Indication: Sedation
     Route: 042
     Dates: start: 20250520, end: 20250531
  6. SUFENTANIL CITRATE [Suspect]
     Active Substance: SUFENTANIL CITRATE
     Route: 042
     Dates: start: 20250607, end: 20250610
  7. LANSOPRAZOLE [Concomitant]
     Active Substance: LANSOPRAZOLE
     Indication: Gastrooesophageal reflux disease
     Route: 048
     Dates: start: 20250528, end: 20250608

REACTIONS (2)
  - Stevens-Johnson syndrome [Recovering/Resolving]
  - Eosinophilia [Recovered/Resolved]

NARRATIVE: CASE EVENT DATE: 20250603
